FAERS Safety Report 11465860 (Version 1)
Quarter: 2015Q3

REPORT INFORMATION
  Report Type: Spontaneous
  Country: US (occurrence: US)
  Receive Date: 20150907
  Receipt Date: 20150907
  Transmission Date: 20151125
  Serious: No
  Sender: FDA-Public Use
  Company Number: US-009507513-1509USA001086

PATIENT
  Age: 30 Year
  Sex: Female
  Weight: 77.98 kg

DRUGS (1)
  1. NEXPLANON [Suspect]
     Active Substance: ETONOGESTREL
     Indication: CONTRACEPTION
     Dosage: 1 IMPLANT 68 MG, EVERY 3 YEARS
     Route: 059
     Dates: start: 20140530, end: 20150901

REACTIONS (5)
  - Device breakage [Recovered/Resolved]
  - Device kink [Recovered/Resolved]
  - Implant site erythema [Unknown]
  - Implant site vesicles [Unknown]
  - Medical device complication [Recovered/Resolved]

NARRATIVE: CASE EVENT DATE: 20141103
